FAERS Safety Report 9424393 (Version 1)
Quarter: 2013Q3

REPORT INFORMATION
  Report Type: Spontaneous
  Country: ES (occurrence: ES)
  Receive Date: 20130729
  Receipt Date: 20130729
  Transmission Date: 20140515
  Serious: Yes (Hospitalization)
  Sender: FDA-Public Use
  Company Number: ES-JNJFOC-20130712889

PATIENT
  Age: 85 Year
  Sex: Female

DRUGS (3)
  1. XARELTO [Suspect]
     Indication: CEREBROVASCULAR ACCIDENT PROPHYLAXIS
     Route: 048
     Dates: start: 2013, end: 20130602
  2. XARELTO [Suspect]
     Indication: ATRIAL FIBRILLATION
     Route: 048
     Dates: start: 2013, end: 20130602
  3. RIFATER (RIFAMPICIN/ISONIAZID/PYRAZINAMIDE) [Suspect]
     Indication: TUBERCULOSIS
     Route: 048
     Dates: start: 20130510, end: 20130602

REACTIONS (2)
  - Pulmonary embolism [Recovering/Resolving]
  - Drug level decreased [Recovered/Resolved]
